FAERS Safety Report 11078013 (Version 3)
Quarter: 2015Q3

REPORT INFORMATION
  Report Type: Spontaneous
  Country: GB (occurrence: GB)
  Receive Date: 20150430
  Receipt Date: 20150728
  Transmission Date: 20151125
  Serious: Yes (Disabling, Other)
  Sender: FDA-Public Use
  Company Number: GB-TEVA-558091ACC

PATIENT
  Age: 46 Year
  Sex: Male

DRUGS (4)
  1. CISPLATIN. [Suspect]
     Active Substance: CISPLATIN
     Indication: LARYNGEAL CANCER
     Dates: start: 201503, end: 201504
  2. ZAPONEX [Suspect]
     Active Substance: CLOZAPINE
     Dosage: 600 MILLIGRAM DAILY;
     Route: 048
     Dates: start: 20081124, end: 20150417
  3. ZAPONEX [Suspect]
     Active Substance: CLOZAPINE
     Dosage: 300 MILLIGRAM DAILY;
     Route: 048
     Dates: start: 20150418, end: 20150420
  4. ZAPONEX [Suspect]
     Active Substance: CLOZAPINE
     Route: 048
     Dates: start: 20150421, end: 20150422

REACTIONS (14)
  - Laryngeal cancer [Not Recovered/Not Resolved]
  - Lymphopenia [Not Recovered/Not Resolved]
  - Platelet count decreased [Recovered/Resolved]
  - Drug effect incomplete [Not Recovered/Not Resolved]
  - Neutrophil count increased [Recovered/Resolved]
  - Product use issue [Not Recovered/Not Resolved]
  - Haemoglobin decreased [Not Recovered/Not Resolved]
  - Platelet count increased [Recovered/Resolved]
  - Leukopenia [Recovered/Resolved]
  - White blood cell count increased [Recovered/Resolved]
  - Metastases to lymph nodes [Not Recovered/Not Resolved]
  - Neutropenia [Recovered/Resolved]
  - White blood cell count decreased [Recovered/Resolved]
  - Neutrophil count decreased [Recovered/Resolved]

NARRATIVE: CASE EVENT DATE: 20141223
